FAERS Safety Report 15263830 (Version 1)
Quarter: 2018Q3

REPORT INFORMATION
  Report Type: Report from Study
  Country: DE (occurrence: DE)
  Receive Date: 20180810
  Receipt Date: 20180810
  Transmission Date: 20181010
  Serious: Yes (Hospitalization)
  Sender: FDA-Public Use
  Company Number: DE-TEVA-2018-DE-937397

PATIENT
  Age: 68 Year
  Sex: Female
  Weight: 70 kg

DRUGS (21)
  1. PACLITAXEL. [Suspect]
     Active Substance: PACLITAXEL
     Route: 065
     Dates: start: 20121119
  2. PACLITAXEL. [Suspect]
     Active Substance: PACLITAXEL
     Route: 065
     Dates: start: 20120807
  3. BEVACIZUMAB. [Suspect]
     Active Substance: BEVACIZUMAB
     Route: 042
     Dates: start: 20121119, end: 20121119
  4. ZOMETA [Concomitant]
     Active Substance: ZOLEDRONIC ACID
     Route: 065
     Dates: start: 20121119
  5. DEXAMETHASON [Concomitant]
     Active Substance: DEXAMETHASONE
     Indication: BREAST CANCER METASTATIC
     Route: 042
  6. ZOMETA [Concomitant]
     Active Substance: ZOLEDRONIC ACID
     Route: 065
     Dates: start: 20121023
  7. PACLITAXEL. [Suspect]
     Active Substance: PACLITAXEL
     Route: 065
     Dates: start: 20121023
  8. BEVACIZUMAB. [Suspect]
     Active Substance: BEVACIZUMAB
     Route: 042
     Dates: start: 20120813, end: 20120813
  9. ZOMETA [Concomitant]
     Active Substance: ZOLEDRONIC ACID
     Route: 065
     Dates: start: 20120807
  10. ZOMETA [Concomitant]
     Active Substance: ZOLEDRONIC ACID
     Route: 065
     Dates: start: 20120827
  11. GRANISETRON [Concomitant]
     Active Substance: GRANISETRON
     Route: 042
  12. PACLITAXEL. [Suspect]
     Active Substance: PACLITAXEL
     Route: 065
     Dates: start: 20120807
  13. CLEMASTIN [Concomitant]
     Active Substance: CLEMASTINE
     Indication: BREAST CANCER METASTATIC
     Route: 042
  14. RAMIPRIL. [Concomitant]
     Active Substance: RAMIPRIL
     Route: 065
     Dates: start: 20100519
  15. PACLITAXEL. [Suspect]
     Active Substance: PACLITAXEL
     Route: 065
     Dates: start: 20121105
  16. PACLITAXEL. [Suspect]
     Active Substance: PACLITAXEL
     Route: 065
     Dates: start: 20121002
  17. PACLITAXEL. [Suspect]
     Active Substance: PACLITAXEL
     Route: 065
     Dates: start: 20120925
  18. PACLITAXEL. [Suspect]
     Active Substance: PACLITAXEL
     Route: 065
     Dates: start: 20120910
  19. BISOPROLOL [Concomitant]
     Active Substance: BISOPROLOL
     Route: 065
     Dates: start: 20121101
  20. ZOMETA [Concomitant]
     Active Substance: ZOLEDRONIC ACID
     Indication: BREAST CANCER METASTATIC
     Route: 042
     Dates: start: 20120807
  21. RANITIDIN [Concomitant]
     Active Substance: RANITIDINE HYDROCHLORIDE
     Indication: BREAST CANCER METASTATIC
     Route: 042

REACTIONS (2)
  - Hypertensive crisis [Recovered/Resolved]
  - Brain stem ischaemia [Recovered/Resolved]

NARRATIVE: CASE EVENT DATE: 20121121
